FAERS Safety Report 6573876-X (Version None)
Quarter: 2010Q1

REPORT INFORMATION
  Report Type: 
  Country: None (occurrence: None)
  Receive Date: 20100204
  Receipt Date: 20100204
  Transmission Date: 20100710
  Serious: Yes (Hospitalization)
  Sender: FDA-Public Use
  Company Number: None

PATIENT
  Age: 38 Year
  Sex: Female

DRUGS (1)
  1. MIRENA [Suspect]

REACTIONS (5)
  - CYST [None]
  - DEVICE DISLOCATION [None]
  - FUNGAL INFECTION [None]
  - MENORRHAGIA [None]
  - NEOPLASM [None]
